FAERS Safety Report 5762451-2 (Version None)
Quarter: 2008Q2

REPORT INFORMATION
  Report Type: 
  Country: None (occurrence: None)
  Receive Date: 20080609
  Receipt Date: 20080609
  Transmission Date: 20081010
  Serious: Yes (Disabling)
  Sender: FDA-Public Use
  Company Number: A0731853A

PATIENT
  Age: 61 Year
  Sex: Female

DRUGS (3)
  1. ALLI [Suspect]
     Route: 048
  2. VITAMIN [Concomitant]
  3. CALCIUM [Concomitant]

REACTIONS (3)
  - ABDOMINAL PAIN UPPER [None]
  - GASTRIC ULCER [None]
  - WEIGHT FLUCTUATION [None]
